FAERS Safety Report 10018113 (Version 2)
Quarter: 2014Q1

REPORT INFORMATION
  Report Type: Spontaneous
  Country: US (occurrence: US)
  Receive Date: 20140318
  Receipt Date: 20140318
  Transmission Date: 20141002
  Serious: Yes (Death, Hospitalization)
  Sender: FDA-Public Use
  Company Number: US-BRISTOL-MYERS SQUIBB COMPANY-18984260

PATIENT
  Age: 52 Year
  Sex: Female
  Weight: 100.13 kg

DRUGS (23)
  1. ERBITUX [Suspect]
     Indication: COLORECTAL CANCER METASTATIC
     Dates: start: 20130515
  2. OXYCODONE [Concomitant]
     Indication: PAIN
     Dosage: HAS USED SR FORUMLATION ALSO
     Dates: start: 20121030
  3. FENTANYL [Concomitant]
     Indication: PAIN
     Dates: start: 20130515
  4. LISINOPRIL [Concomitant]
     Indication: HYPERTENSION
     Dates: start: 20130320
  5. EMLA [Concomitant]
     Dates: start: 20121031
  6. COD LIVER OIL [Concomitant]
     Indication: SUPPLEMENTATION THERAPY
     Dates: start: 20121030
  7. LORAZEPAM [Concomitant]
     Indication: ANXIETY
     Dates: start: 20121031
  8. LORAZEPAM [Concomitant]
     Indication: NAUSEA
     Dates: start: 20121031
  9. MULTIVITAMIN [Concomitant]
     Indication: SUPPLEMENTATION THERAPY
     Dates: start: 20120914
  10. MYLANTA [Concomitant]
     Dates: start: 20120914
  11. COMPAZINE [Concomitant]
     Indication: NAUSEA
     Dates: start: 20121030
  12. SELENIUM [Concomitant]
     Indication: SUPPLEMENTATION THERAPY
     Dates: start: 20120914
  13. TAURINE [Concomitant]
     Indication: SUPPLEMENTATION THERAPY
     Dates: start: 20121030
  14. VITAMIN C [Concomitant]
     Indication: SUPPLEMENTATION THERAPY
     Dates: start: 20120914
  15. VITAMIN D [Concomitant]
     Indication: SUPPLEMENTATION THERAPY
     Dates: start: 20120914
  16. ZOFRAN [Concomitant]
     Indication: NAUSEA
     Dates: start: 20121217
  17. ZOLOFT [Concomitant]
     Indication: DEPRESSION
     Dates: start: 2013
  18. TURMERIC [Concomitant]
     Indication: PHYTOTHERAPY
     Dates: start: 201209
  19. OMEGA [Concomitant]
     Indication: SUPPLEMENTATION THERAPY
     Dates: start: 201209
  20. CALCIUM [Concomitant]
     Indication: SUPPLEMENTATION THERAPY
     Dates: start: 20121030
  21. MIRALAX [Concomitant]
     Indication: CONSTIPATION
     Dates: start: 20121030
  22. LECITHIN [Concomitant]
     Indication: SUPPLEMENTATION THERAPY
     Dates: start: 201209
  23. HERBAL MIXTURE [Concomitant]
     Dates: start: 20120920

REACTIONS (2)
  - Malignant neoplasm progression [Fatal]
  - Metastatic neoplasm [Unknown]
